FAERS Safety Report 4804829-7 (Version None)
Quarter: 2005Q4

REPORT INFORMATION
  Report Type: 
  Country: None (occurrence: None)
  Receive Date: 20051017
  Receipt Date: 20051007
  Transmission Date: 20060501
  Serious: Yes (Hospitalization)
  Sender: FDA-Public Use
  Company Number: COV2-2005-00069

PATIENT
  Age: 50 Year
  Sex: Female
  Weight: 143.9 kg

DRUGS (16)
  1. FOSRENOL [Suspect]
     Indication: HYPERPHOSPHATAEMIA
     Dosage: 1000 MG, 3X/DAY:TID, ORAL
     Route: 048
     Dates: start: 20050604, end: 20050610
  2. NEPHRO-VITE RX (ASCORBIC ACID, FOLIC ACID, VITAMIN B NOS) [Concomitant]
  3. ECOTRIN (ACETYLSALICYLIC ACID) [Concomitant]
  4. L-THYROXIN ^HENNING BERLIN^ (LEVOTHYROXINE SODIUM) [Concomitant]
  5. NITROGLYCERIN SL [Concomitant]
  6. QUININE SULFATE [Concomitant]
  7. LISINOPRIL [Concomitant]
  8. DIGOXIN [Concomitant]
  9. NORVASC/DEN/(AMLODIPINE BESILATE) [Concomitant]
  10. ZOCOR ^MERCK FROSST^ (SIMVASTATIN) [Concomitant]
  11. CLONIDINE [Concomitant]
  12. LANTUS INSULIN (INSULIN) [Concomitant]
  13. NOVOLOG [Concomitant]
  14. ACTOS [Concomitant]
  15. ARANESP [Concomitant]
  16. FERRLECIT/GFR/(FERRIC SODIUM GLUCONATE COMPLEX) [Concomitant]

REACTIONS (16)
  - ASTHENIA [None]
  - BACTERAEMIA [None]
  - BACTERIA URINE IDENTIFIED [None]
  - BLOOD PRESSURE DIASTOLIC DECREASED [None]
  - CONDITION AGGRAVATED [None]
  - DIABETIC GASTROPARESIS [None]
  - DIARRHOEA [None]
  - DIZZINESS [None]
  - GASTROENTERITIS [None]
  - MEDICAL DEVICE COMPLICATION [None]
  - NAUSEA [None]
  - PYREXIA [None]
  - RESPIRATORY RATE INCREASED [None]
  - SEPSIS [None]
  - STAPHYLOCOCCAL BACTERAEMIA [None]
  - VOMITING [None]
